FAERS Safety Report 8294498-9 (Version None)
Quarter: 2012Q2

REPORT INFORMATION
  Report Type: 
  Country: None (occurrence: None)
  Receive Date: 20120418
  Receipt Date: 20120410
  Transmission Date: 20120825
  Serious: Yes (Hospitalization)
  Sender: FDA-Public Use
  Company Number: US-UCBSA-055197

PATIENT
  Age: 51 Year
  Sex: Female
  Weight: 97 kg

DRUGS (12)
  1. ZYRTEC [Concomitant]
     Indication: SEASONAL ALLERGY
     Route: 048
     Dates: start: 20120301
  2. ESTRADIOL [Concomitant]
     Indication: OESTROGEN REPLACEMENT THERAPY
     Dosage: 1.5 MG DAILY
     Dates: start: 20030101
  3. LORAZEPAM [Concomitant]
     Indication: ANXIETY
     Dosage: 0.5 MG PRN
     Dates: start: 20050101
  4. VITAMIN B-12 [Concomitant]
     Indication: VITAMIN SUPPLEMENTATION
     Route: 030
     Dates: start: 20070101
  5. ZOLPIDEM [Concomitant]
     Indication: INSOMNIA
     Dosage: 10 MG AT BEDTIME
     Dates: start: 20050101
  6. PAROXETINE [Concomitant]
     Indication: DEPRESSION
     Dosage: 40 MG DAILY
     Dates: start: 20050101
  7. CLARITIN-D [Concomitant]
     Indication: SEASONAL ALLERGY
     Dosage: 5-120 MG DAILY PRN
     Dates: start: 20100301
  8. NAPROXEN [Concomitant]
  9. RANITIDINE [Concomitant]
     Indication: GASTROOESOPHAGEAL REFLUX DISEASE
     Dates: start: 20040101
  10. DIFLUCAN [Concomitant]
     Indication: ORAL CANDIDIASIS
     Dosage: 100MG DAILY PRN FOR 10 DAYS
     Route: 048
  11. CIMZIA [Suspect]
     Indication: CROHN'S DISEASE
     Route: 058
     Dates: start: 20100308
  12. VENTOLIN [Concomitant]
     Indication: UPPER RESPIRATORY TRACT INFECTION
     Dosage: 90 MCG/ACT 2 PUFFS, QID PRN
     Dates: start: 20040101

REACTIONS (1)
  - SUBCUTANEOUS ABSCESS [None]
